FAERS Safety Report 7670336-X (Version None)
Quarter: 2011Q3

REPORT INFORMATION
  Report Type: 
  Country: None (occurrence: None)
  Receive Date: 20110809
  Receipt Date: 20110804
  Transmission Date: 20111222
  Serious: No
  Sender: FDA-Public Use
  Company Number: US-BIOGENIDEC-2011BI003736

PATIENT
  Age: 62 Year
  Sex: Female

DRUGS (1)
  1. TYSABRI [Suspect]
     Indication: MULTIPLE SCLEROSIS
     Route: 042
     Dates: start: 20101129

REACTIONS (5)
  - WEIGHT INCREASED [None]
  - RHEUMATOID ARTHRITIS [None]
  - GLUCOSE TOLERANCE IMPAIRED [None]
  - PRURITUS [None]
  - RASH ERYTHEMATOUS [None]
